FAERS Safety Report 9219255 (Version 3)
Quarter: 2013Q2

REPORT INFORMATION
  Report Type: Spontaneous
  Country: US (occurrence: US)
  Receive Date: 20130409
  Receipt Date: 20130605
  Transmission Date: 20140414
  Serious: Yes (Other)
  Sender: FDA-Public Use
  Company Number: US-BAYER-2013-044480

PATIENT
  Age: 53 Year
  Sex: Female
  Weight: 109 kg

DRUGS (6)
  1. ALEVE TABLET [Suspect]
     Indication: PAIN IN EXTREMITY
     Dosage: 2 DF, AFTER MEALS
     Route: 048
     Dates: start: 201301
  2. ALEVE TABLET [Suspect]
     Indication: PAIN IN EXTREMITY
     Dosage: 2 DF, HS
     Dates: start: 20130401, end: 20130402
  3. ALEVE TABLET [Suspect]
     Indication: PAIN IN EXTREMITY
     Dosage: 2 DF, HS
     Dates: start: 20130401, end: 20130402
  4. BYSTOLIC [Concomitant]
  5. DILTIAZEM [Concomitant]
     Indication: HYPERTENSION
     Dosage: 120 MG, QD
     Dates: start: 2005
  6. HYDROCHLOROTHIAZIDE [Concomitant]
     Indication: HYPERTENSION
     Dosage: 25 MG, QD
     Dates: start: 2005

REACTIONS (5)
  - Hallucination [Recovered/Resolved]
  - Hallucination, visual [Recovered/Resolved]
  - Nightmare [Recovered/Resolved]
  - Malaise [Recovered/Resolved]
  - Headache [Recovered/Resolved]
